FAERS Safety Report 9403513 (Version 1)
Quarter: 2013Q3

REPORT INFORMATION
  Report Type: Spontaneous
  Country: US (occurrence: US)
  Receive Date: 20130716
  Receipt Date: 20130716
  Transmission Date: 20140515
  Serious: No
  Sender: FDA-Public Use
  Company Number: US-B.I. PHARMACEUTICALS,INC./RIDGEFIELD-2013-BI-20245BP

PATIENT
  Sex: Male

DRUGS (6)
  1. COMBIVENT [Suspect]
     Indication: CHRONIC OBSTRUCTIVE PULMONARY DISEASE
     Dosage: STRENGTH: 18 MCG / 103 MCG; DAILY DOSE: 108 MCG / 618 MCG
     Route: 055
     Dates: start: 2003, end: 20130630
  2. FETANYL PATCH [Concomitant]
     Indication: BACK PAIN
     Dosage: FORMULATION: PATCH ; STRENGTH: UNKNOWN
     Route: 061
  3. LORTAB [Concomitant]
     Indication: BACK PAIN
     Dosage: STRENGTH: 10 MG / 325 MG; DAILY DOSE: 30 MG / 975 MG
     Route: 048
  4. VALIUM [Concomitant]
     Route: 048
  5. TRAZADONE [Concomitant]
     Indication: SLEEP DISORDER
     Dosage: 100 MG
     Route: 048
  6. ALBUTEROL NEBULIZER [Concomitant]
     Indication: CHRONIC OBSTRUCTIVE PULMONARY DISEASE
     Dosage: FORMULATION: INHALATION AEROSOL; STRENGTH: UNKNOWN
     Route: 055

REACTIONS (2)
  - Intervertebral disc protrusion [Not Recovered/Not Resolved]
  - Muscular weakness [Not Recovered/Not Resolved]
